FAERS Safety Report 6863142-7 (Version None)
Quarter: 2010Q3

REPORT INFORMATION
  Report Type: 
  Country: None (occurrence: None)
  Receive Date: 20100721
  Receipt Date: 20100714
  Transmission Date: 20110219
  Serious: Yes (Death)
  Sender: FDA-Public Use
  Company Number: US-ROCHE-716236

PATIENT
  Sex: Female

DRUGS (6)
  1. BEVACIZUMAB [Suspect]
     Route: 042
     Dates: start: 20071016, end: 20090203
  2. BEVACIZUMAB [Suspect]
     Dosage: DOSE: 10 MG/KG OVER 30-90 MIN ON DAY 1 AND 15
     Route: 042
     Dates: start: 20090612, end: 20090727
  3. FLUOROURACIL [Suspect]
     Dosage: 3 DAY CONTINUOUS PUMP, ROUTE: INTRAVENOUS BOLUS
     Route: 042
     Dates: start: 20071016, end: 20090205
  4. FLUOROURACIL [Suspect]
     Route: 042
     Dates: start: 20071016, end: 20090205
  5. LEUCOVORIN CALCIUM [Suspect]
     Route: 042
     Dates: start: 20071016, end: 20090203
  6. TEMSIROLIMUS [Concomitant]
     Dosage: DOSE: 25 MG OVER 30 MIN ON DAYS: 1, 8, 15 AND 22
     Route: 042
     Dates: start: 20090612, end: 20090810

REACTIONS (1)
  - DEATH [None]
